FAERS Safety Report 7596434-7 (Version None)
Quarter: 2011Q3

REPORT INFORMATION
  Report Type: 
  Country: None (occurrence: None)
  Receive Date: 20110707
  Receipt Date: 20110629
  Transmission Date: 20111222
  Serious: Yes (Other)
  Sender: FDA-Public Use
  Company Number: FR-BRISTOL-MYERS SQUIBB COMPANY-15878564

PATIENT
  Sex: Female

DRUGS (2)
  1. LYSODREN [Suspect]
     Indication: PITUITARY-DEPENDENT CUSHING'S SYNDROME
  2. KETOCONAZOLE [Suspect]
     Indication: PITUITARY-DEPENDENT CUSHING'S SYNDROME

REACTIONS (1)
  - HEPATITIS [None]
